FAERS Safety Report 6361940-X (Version None)
Quarter: 2009Q3

REPORT INFORMATION
  Report Type: 
  Country: None (occurrence: None)
  Receive Date: 20090918
  Receipt Date: 20090909
  Transmission Date: 20100115
  Serious: No
  Sender: FDA-Public Use
  Company Number: B0593271A

PATIENT
  Age: 11 Year
  Sex: Male

DRUGS (2)
  1. RELENZA [Suspect]
     Indication: DRUG USE FOR UNKNOWN INDICATION
     Dosage: 10MG PER DAY
     Dates: start: 20090905
  2. RELENZA [Suspect]
     Dosage: 20MG PER DAY
     Dates: start: 20090908, end: 20090908

REACTIONS (1)
  - OVERDOSE [None]
